FAERS Safety Report 7506908-2 (Version None)
Quarter: 2011Q2

REPORT INFORMATION
  Report Type: 
  Country: None (occurrence: None)
  Receive Date: 20110415
  Receipt Date: 20101004
  Transmission Date: 20111010
  Serious: Yes (Hospitalization)
  Sender: FDA-Public Use
  Company Number: 10-001434

PATIENT
  Age: 38 Year
  Sex: Female

DRUGS (2)
  1. LOESTRIN 24 FE [Suspect]
     Indication: UTERINE HAEMORRHAGE
     Dosage: TWO 20/1000 UG TABLETS, QD, ORAL
     Route: 048
     Dates: start: 20100601
  2. LYSTEDA [Suspect]
     Indication: UTERINE HAEMORRHAGE
     Dosage: 1300 MG, TID, ORAL
     Route: 048
     Dates: start: 20100812

REACTIONS (3)
  - WHITE BLOOD CELL COUNT INCREASED [None]
  - ISCHAEMIC STROKE [None]
  - HEAD INJURY [None]
